FAERS Safety Report 23355977 (Version 3)
Quarter: 2024Q1

REPORT INFORMATION
  Report Type: Spontaneous
  Country: US (occurrence: US)
  Receive Date: 20240102
  Receipt Date: 20240311
  Transmission Date: 20240410
  Serious: No
  Sender: FDA-Public Use
  Company Number: US-AMGEN-USASP2023232735

PATIENT
  Age: 82 Year
  Sex: Female
  Weight: 73.469 kg

DRUGS (1)
  1. NEULASTA [Suspect]
     Active Substance: PEGFILGRASTIM
     Indication: Prophylaxis
     Dosage: UNK
     Route: 065

REACTIONS (3)
  - Drug dose omission by device [Unknown]
  - Device physical property issue [Unknown]
  - Device physical property issue [Unknown]

NARRATIVE: CASE EVENT DATE: 20231130
